FAERS Safety Report 13765207 (Version 1)
Quarter: 2017Q3

REPORT INFORMATION
  Report Type: Spontaneous
  Country: US (occurrence: US)
  Receive Date: 20170718
  Receipt Date: 20170718
  Transmission Date: 20171127
  Serious: Yes (Other)
  Sender: FDA-Public Use
  Company Number: US-ASTRAZENECA-2017SE71454

PATIENT
  Age: 80 Year
  Sex: Female

DRUGS (11)
  1. ALLOPURINOL. [Concomitant]
     Active Substance: ALLOPURINOL
  2. CLONIDINE. [Concomitant]
     Active Substance: CLONIDINE
  3. COLCHICINE. [Concomitant]
     Active Substance: COLCHICINE
  4. REPATHA [Suspect]
     Active Substance: EVOLOCUMAB
     Indication: BLOOD CHOLESTEROL INCREASED
     Dosage: 14 MG VERY TWO WEEKS
     Route: 058
  5. REPATHA [Suspect]
     Active Substance: EVOLOCUMAB
     Indication: BLOOD CHOLESTEROL INCREASED
     Dosage: 14 MG VERY TWO WEEKS
     Route: 058
  6. REPATHA [Suspect]
     Active Substance: EVOLOCUMAB
     Indication: HYPERLIPIDAEMIA
     Dosage: 14 MG VERY TWO WEEKS
     Route: 058
  7. REPATHA [Suspect]
     Active Substance: EVOLOCUMAB
     Indication: HYPERLIPIDAEMIA
     Dosage: 14 MG VERY TWO WEEKS
     Route: 058
  8. IMDUR [Suspect]
     Active Substance: ISOSORBIDE MONONITRATE
     Route: 048
  9. CRESTOR [Suspect]
     Active Substance: ROSUVASTATIN CALCIUM
     Indication: HYPERLIPIDAEMIA
     Route: 048
  10. LOPRESSOR [Concomitant]
     Active Substance: METOPROLOL TARTRATE
     Route: 048
  11. DEBROX [Concomitant]
     Active Substance: CARBAMIDE PEROXIDE

REACTIONS (12)
  - Gait disturbance [Unknown]
  - Ear haemorrhage [Unknown]
  - Myalgia [Unknown]
  - Myocardial ischaemia [Unknown]
  - Angina unstable [Recovered/Resolved]
  - Blood glucose abnormal [Unknown]
  - Drug eruption [Unknown]
  - Drug hypersensitivity [Unknown]
  - Excessive cerumen production [Unknown]
  - Pruritus [Unknown]
  - Ear infection bacterial [Unknown]
  - External ear disorder [Unknown]

NARRATIVE: CASE EVENT DATE: 201611
